FAERS Safety Report 9537404 (Version 3)
Quarter: 2013Q4

REPORT INFORMATION
  Report Type: Report from Study
  Country: US (occurrence: US)
  Receive Date: 20130919
  Receipt Date: 20131221
  Transmission Date: 20140711
  Serious: Yes (Life-Threatening, Hospitalization)
  Sender: FDA-Public Use
  Company Number: PHEH2013US011426

PATIENT
  Sex: Female

DRUGS (1)
  1. TOBI [Suspect]
     Dosage: 300 MG, BID
     Route: 055

REACTIONS (7)
  - Feeling abnormal [Unknown]
  - Dyskinesia [Unknown]
  - Speech disorder [Unknown]
  - Fungal infection [Unknown]
  - Bacterial infection [Unknown]
  - Malaise [Unknown]
  - Weight decreased [Unknown]
